FAERS Safety Report 7910081-6 (Version None)
Quarter: 2011Q4

REPORT INFORMATION
  Report Type: 
  Country: None (occurrence: None)
  Receive Date: 20111111
  Receipt Date: 20111026
  Transmission Date: 20120403
  Serious: Yes (Hospitalization, Other)
  Sender: FDA-Public Use
  Company Number: CA-ROCHE-1008664

PATIENT
  Sex: Female

DRUGS (6)
  1. ADVAIR DISKUS 100/50 [Concomitant]
  2. SINGULAIR [Concomitant]
  3. PREDNISONE TAB [Concomitant]
  4. XOLAIR [Suspect]
     Indication: ASTHMA
     Route: 058
     Dates: start: 20110217
  5. ALVESCO [Concomitant]
  6. ALBUTEROL SULFATE AUTOHALER [Concomitant]

REACTIONS (6)
  - BRONCHIECTASIS [None]
  - PNEUMONIA [None]
  - COUGH [None]
  - HEART RATE INCREASED [None]
  - DYSPNOEA EXERTIONAL [None]
  - ARTHRALGIA [None]
